FAERS Safety Report 21463614 (Version 5)
Quarter: 2023Q1

REPORT INFORMATION
  Report Type: Report from Study
  Country: CO (occurrence: CO)
  Receive Date: 20221017
  Receipt Date: 20230204
  Transmission Date: 20230418
  Serious: Yes (Other)
  Sender: FDA-Public Use
  Company Number: CO-NOVARTISPH-NVSC2022CO231718

PATIENT
  Sex: Female
  Weight: 58 kg

DRUGS (4)
  1. BROLUCIZUMAB [Suspect]
     Active Substance: BROLUCIZUMAB
     Indication: Macular degeneration
     Dosage: UNK, QMO
     Route: 047
     Dates: start: 202205
  2. BROLUCIZUMAB [Suspect]
     Active Substance: BROLUCIZUMAB
     Dosage: UNK
     Route: 065
     Dates: start: 202206
  3. CARVEDILOL [Suspect]
     Active Substance: CARVEDILOL
     Indication: Hypertension
     Dosage: UNK, QD (SINCE 6 MONTHS AGO)
     Route: 048
  4. LOSARTAN [Suspect]
     Active Substance: LOSARTAN
     Indication: Hypertension
     Dosage: UNK, QD (SINCE 6 MONTHS AGO)
     Route: 048

REACTIONS (3)
  - Cholelithiasis [Unknown]
  - Suture related complication [Recovering/Resolving]
  - Application site pain [Recovered/Resolved]
